FAERS Safety Report 4471608-2 (Version None)
Quarter: 2004Q4

REPORT INFORMATION
  Report Type: 
  Country: None (occurrence: None)
  Receive Date: 20041012
  Receipt Date: 20041004
  Transmission Date: 20050328
  Serious: Yes (Hospitalization)
  Sender: FDA-Public Use
  Company Number: US-JNJFOC-20041001012

PATIENT
  Sex: Male
  Weight: 32.66 kg

DRUGS (2)
  1. CONCERTA [Suspect]
     Route: 049
     Dates: start: 20040701
  2. ZYPREXA [Concomitant]

REACTIONS (3)
  - DYSKINESIA [None]
  - FEELING DRUNK [None]
  - TREMOR [None]
